FAERS Safety Report 4778415-1 (Version None)
Quarter: 2005Q3

REPORT INFORMATION
  Report Type: 
  Country: None (occurrence: None)
  Receive Date: 20050926
  Receipt Date: 20050920
  Transmission Date: 20060218
  Serious: Yes (Death)
  Sender: FDA-Public Use
  Company Number: JP-SANOFI-SYNTHELABO-A01200506423

PATIENT
  Age: 54 Year
  Sex: Male

DRUGS (3)
  1. OXALIPLATIN [Suspect]
     Dates: start: 20050816, end: 20050816
  2. CALCIUM LEVOFOLINATE [Concomitant]
     Dosage: 200MG/BODY
     Dates: start: 20050715, end: 20050816
  3. FLUOROURACIL [Concomitant]
     Dosage: 1000MG/BODY
     Dates: start: 20050715, end: 20050816

REACTIONS (5)
  - DIARRHOEA [None]
  - DISSEMINATED INTRAVASCULAR COAGULATION [None]
  - GASTROINTESTINAL HAEMORRHAGE [None]
  - NEUTROPENIA [None]
  - THROMBOCYTOPENIA [None]
